FAERS Safety Report 4497695-3 (Version None)
Quarter: 2004Q4

REPORT INFORMATION
  Report Type: 
  Country: None (occurrence: None)
  Receive Date: 20041108
  Receipt Date: 20041027
  Transmission Date: 20050328
  Serious: Yes (Death)
  Sender: FDA-Public Use
  Company Number: US-JNJFOC-20041008588

PATIENT
  Age: 86 Year
  Sex: Male
  Weight: 74.84 kg

DRUGS (1)
  1. HALDOL [Suspect]
     Indication: RESTLESSNESS
     Dosage: INITAL DOSE WAS 4 MG. (GIVEN A TOTAL OF 12 MG IN 2 1/2 HOURS)
     Route: 042
     Dates: start: 20040626, end: 20040626

REACTIONS (5)
  - AGITATION [None]
  - BLOOD PRESSURE INCREASED [None]
  - IRRITABILITY [None]
  - MEDICATION ERROR [None]
  - RESPIRATORY ARREST [None]
